FAERS Safety Report 9985749 (Version 1)
Quarter: 2014Q1

REPORT INFORMATION
  Report Type: Report from Study
  Country: US (occurrence: US)
  Receive Date: 20140307
  Receipt Date: 20140307
  Transmission Date: 20141002
  Serious: No
  Sender: FDA-Public Use
  Company Number: US-ABBVIE-13P-163-1089404-00

PATIENT
  Age: 63 Year
  Sex: Female

DRUGS (4)
  1. HUMIRA [Suspect]
     Indication: RHEUMATOID ARTHRITIS
     Dates: start: 2010
  2. AMBIEN [Concomitant]
     Indication: INSOMNIA
     Dosage: EVERY NIGHT
  3. RELAFEN [Concomitant]
     Indication: RHEUMATOID ARTHRITIS
     Dosage: DAILY
  4. METHOTREXATE [Concomitant]
     Indication: RHEUMATOID ARTHRITIS

REACTIONS (2)
  - Road traffic accident [Recovering/Resolving]
  - Post-traumatic neck syndrome [Recovering/Resolving]
